FAERS Safety Report 16180144 (Version 1)
Quarter: 2019Q2

REPORT INFORMATION
  Report Type: Spontaneous
  Country: US (occurrence: US)
  Receive Date: 20190409
  Receipt Date: 20190409
  Transmission Date: 20190711
  Serious: Yes (Other)
  Sender: FDA-Public Use
  Company Number: None

PATIENT
  Age: 45 Year
  Sex: Female
  Weight: 105.75 kg

DRUGS (7)
  1. METFORMIN [Concomitant]
     Active Substance: METFORMIN HYDROCHLORIDE
  2. B-100 COMPLEX [Concomitant]
     Active Substance: DEXPANTHENOL\NIACINAMIDE\PYRIDOXINE HYDROCHLORIDE\RIBOFLAVIN 5^-PHOSPHATE SODIUM\THIAMINE HYDROCHLORIDE
  3. VITAMIN D3 [Concomitant]
     Active Substance: CHOLECALCIFEROL
  4. SOLARAY NIACIN 500 MG [Suspect]
     Active Substance: NIACIN
     Indication: HYPERTENSION
     Dosage: ?          QUANTITY:1 CAPSULE(S);?
     Route: 048
     Dates: start: 20190318, end: 20190407
  5. METROPROLOL [Concomitant]
     Active Substance: METOPROLOL
  6. IRON [Concomitant]
     Active Substance: IRON
  7. LISINOPRIL. [Concomitant]
     Active Substance: LISINOPRIL

REACTIONS (8)
  - Flushing [None]
  - Skin wrinkling [None]
  - Burning sensation [None]
  - Swelling face [None]
  - Erythema [None]
  - Pain [None]
  - Pruritus [None]
  - Skin laxity [None]

NARRATIVE: CASE EVENT DATE: 20190407
